FAERS Safety Report 24536418 (Version 2)
Quarter: 2024Q4

REPORT INFORMATION
  Report Type: Spontaneous
  Country: IL (occurrence: IL)
  Receive Date: 20241022
  Receipt Date: 20241101
  Transmission Date: 20250115
  Serious: Yes (Other)
  Sender: TEVA
  Company Number: IL-TEVA-VS-3254563

PATIENT
  Age: 78 Year
  Sex: Female

DRUGS (5)
  1. PACLITAXEL [Suspect]
     Active Substance: PACLITAXEL
     Indication: HER2 positive endometrial cancer
     Route: 065
  2. CARBOPLATIN [Suspect]
     Active Substance: CARBOPLATIN
     Indication: HER2 positive endometrial cancer
     Route: 065
  3. PEMBROLIZUMAB [Suspect]
     Active Substance: PEMBROLIZUMAB
     Indication: HER2 positive endometrial cancer
     Route: 065
  4. TRASTUZUMAB DERUXTECAN [Suspect]
     Active Substance: TRASTUZUMAB DERUXTECAN
     Indication: HER2 positive endometrial cancer
     Route: 065
  5. LENVATINIB [Suspect]
     Active Substance: LENVATINIB
     Indication: HER2 positive endometrial cancer
     Route: 065

REACTIONS (2)
  - Interstitial lung disease [Unknown]
  - Drug ineffective [Unknown]
